FAERS Safety Report 25136899 (Version 3)
Quarter: 2025Q3

REPORT INFORMATION
  Report Type: Spontaneous
  Country: JP (occurrence: JP)
  Receive Date: 20250328
  Receipt Date: 20250702
  Transmission Date: 20251020
  Serious: Yes (Death, Hospitalization)
  Sender: DAIICHI
  Company Number: JP-DSJP-DS-2025-132813-JPAA

PATIENT
  Age: 78 Year
  Sex: Female
  Weight: 63.6 kg

DRUGS (1)
  1. ENHERTU [Suspect]
     Active Substance: FAM-TRASTUZUMAB DERUXTECAN-NXKI
     Indication: HER2 low breast cancer
     Route: 041
     Dates: start: 20250304, end: 20250304

REACTIONS (2)
  - Diarrhoea [Fatal]
  - Underdose [Unknown]

NARRATIVE: CASE EVENT DATE: 20250304
